FAERS Safety Report 5494477-0 (Version None)
Quarter: 2007Q4

REPORT INFORMATION
  Report Type: 
  Country: None (occurrence: None)
  Receive Date: 20071023
  Receipt Date: 20071023
  Transmission Date: 20080405
  Serious: Yes (Hospitalization)
  Sender: FDA-Public Use
  Company Number: None

PATIENT
  Age: 67 Year
  Sex: Male
  Weight: 61 kg

DRUGS (4)
  1. WARFARIN SODIUM [Suspect]
     Indication: EMBOLISM
     Dosage: 3MG  DAILY  PO
     Route: 048
  2. BACTRIM [Suspect]
     Indication: SINUSITIS
  3. ASPIRIN [Concomitant]
  4. ZOCOR [Concomitant]

REACTIONS (10)
  - DYSPNOEA [None]
  - FLATULENCE [None]
  - HAEMORRHAGE [None]
  - INTERNATIONAL NORMALISED RATIO INCREASED [None]
  - INTESTINAL MASS [None]
  - LOCAL SWELLING [None]
  - PROTHROMBIN TIME PROLONGED [None]
  - PRURITUS [None]
  - RECTAL HAEMORRHAGE [None]
  - SINUSITIS [None]
